FAERS Safety Report 23034293 (Version 2)
Quarter: 2023Q4

REPORT INFORMATION
  Report Type: Spontaneous
  Country: US (occurrence: US)
  Receive Date: 20231005
  Receipt Date: 20231108
  Transmission Date: 20240110
  Serious: Yes (Other)
  Sender: FDA-Public Use
  Company Number: US-AMGEN-USASP2023173511

PATIENT
  Age: 78 Year
  Sex: Female

DRUGS (1)
  1. PROLIA [Suspect]
     Active Substance: DENOSUMAB
     Indication: Osteoporosis
     Dosage: UNK
     Route: 065

REACTIONS (6)
  - Choking [Unknown]
  - Lung neoplasm malignant [Unknown]
  - Coronary artery disease [Unknown]
  - Lipoprotein (a) increased [Unknown]
  - Back disorder [Unknown]
  - Sciatica [Unknown]
